FAERS Safety Report 8140804-5 (Version None)
Quarter: 2012Q1

REPORT INFORMATION
  Report Type: 
  Country: None (occurrence: None)
  Receive Date: 20120216
  Receipt Date: 20120207
  Transmission Date: 20120608
  Serious: Yes (Other)
  Sender: FDA-Public Use
  Company Number: US-BRISTOL-MYERS SQUIBB COMPANY-16388365

PATIENT

DRUGS (1)
  1. YERVOY [Suspect]
     Dosage: RECEIVED ALL 4 DOSES,7 MONTHS OFF

REACTIONS (1)
  - LUNG NEOPLASM [None]
